FAERS Safety Report 15565339 (Version 1)
Quarter: 2018Q4

REPORT INFORMATION
  Report Type: Spontaneous
  Country: US (occurrence: US)
  Receive Date: 20181024
  Receipt Date: 20181024
  Transmission Date: 20190205
  Serious: No
  Sender: FDA-Public Use
  Company Number: None

PATIENT
  Age: 72 Year
  Sex: Female
  Weight: 74.84 kg

DRUGS (1)
  1. STELARA [Suspect]
     Active Substance: USTEKINUMAB
     Indication: PSORIASIS
     Dosage: INJECT 45MG SUBCUTANEOUSLY ON DAY 0 AND DAY 28  THEN  EVERY 12 WEEKS  AS DIRECTED
     Route: 058
     Dates: start: 201307

REACTIONS (1)
  - Gout [None]
